FAERS Safety Report 11150036 (Version 2)
Quarter: 2015Q2

REPORT INFORMATION
  Report Type: Spontaneous
  Country: FR (occurrence: FR)
  Receive Date: 20150529
  Receipt Date: 20150605
  Transmission Date: 20150821
  Serious: Yes (Hospitalization)
  Sender: FDA-Public Use
  Company Number: FR-MERCK-1505FRA014940

PATIENT
  Age: 72 Year
  Sex: Female

DRUGS (1)
  1. JANUVIA [Suspect]
     Active Substance: SITAGLIPTIN PHOSPHATE
     Indication: TYPE 2 DIABETES MELLITUS
     Dosage: 1 DF, QD
     Route: 048
     Dates: start: 20141201, end: 201502

REACTIONS (1)
  - Pyelonephritis acute [Recovered/Resolved]

NARRATIVE: CASE EVENT DATE: 20150224
